FAERS Safety Report 21259657 (Version 7)
Quarter: 2023Q4

REPORT INFORMATION
  Report Type: Report from Study
  Country: US (occurrence: US)
  Receive Date: 20220826
  Receipt Date: 20231201
  Transmission Date: 20240110
  Serious: Yes (Hospitalization)
  Sender: FDA-Public Use
  Company Number: US-NOVARTISTESTPH-NVSC2022US191893

PATIENT
  Sex: Male

DRUGS (2)
  1. TAFINLAR [Suspect]
     Active Substance: DABRAFENIB MESYLATE
     Indication: Thyroid cancer
     Dosage: UNK
     Route: 065
  2. MEKINIST [Suspect]
     Active Substance: TRAMETINIB DIMETHYL SULFOXIDE
     Indication: Thyroid cancer
     Dosage: UNK
     Route: 065

REACTIONS (8)
  - Pneumonia [Unknown]
  - Thrombosis [Unknown]
  - Tremor [Unknown]
  - Vomiting [Unknown]
  - Pyrexia [Unknown]
  - Dysphonia [Unknown]
  - COVID-19 [Unknown]
  - Product storage error [Unknown]
